FAERS Safety Report 5956875-8 (Version None)
Quarter: 2008Q4

REPORT INFORMATION
  Report Type: 
  Country: None (occurrence: None)
  Receive Date: 20081031
  Receipt Date: 20080813
  Transmission Date: 20090506
  Serious: No
  Sender: FDA-Public Use
  Company Number: 2008PV036452

PATIENT
  Age: 57 Year
  Sex: Female

DRUGS (8)
  1. SYMLIN [Suspect]
     Indication: TYPE 1 DIABETES MELLITUS
     Dosage: 120 MCG;BID;SC
     Route: 058
     Dates: start: 20080401
  2. SYMLIN [Suspect]
     Indication: TYPE 1 DIABETES MELLITUS
     Dosage: 60 MCG;BID;SC
     Dates: start: 20080101, end: 20080401
  3. SYMLIN [Suspect]
     Indication: TYPE 1 DIABETES MELLITUS
     Dosage: 60 MCG;BID;SC; 45 MCG;BID;SC; 30 MCG;BID;SC; 15 MCG;BID;SC
     Route: 058
     Dates: start: 20070101, end: 20070101
  4. SYMLIN [Suspect]
     Indication: TYPE 1 DIABETES MELLITUS
     Dosage: 60 MCG;BID;SC; 45 MCG;BID;SC; 30 MCG;BID;SC; 15 MCG;BID;SC
     Route: 058
     Dates: start: 20070101, end: 20070101
  5. SYMLIN [Suspect]
     Indication: TYPE 1 DIABETES MELLITUS
     Dosage: 60 MCG;BID;SC; 45 MCG;BID;SC; 30 MCG;BID;SC; 15 MCG;BID;SC
     Route: 058
     Dates: start: 20070201, end: 20070101
  6. SYMLIN [Suspect]
     Indication: TYPE 1 DIABETES MELLITUS
     Dosage: 60 MCG;BID;SC; 45 MCG;BID;SC; 30 MCG;BID;SC; 15 MCG;BID;SC
     Route: 058
     Dates: start: 20070101, end: 20080101
  7. HUMALOG [Suspect]
  8. LANTUS [Concomitant]

REACTIONS (2)
  - DRUG PRESCRIBING ERROR [None]
  - NAUSEA [None]
